FAERS Safety Report 21361625 (Version 6)
Quarter: 2023Q4

REPORT INFORMATION
  Report Type: Report from Study
  Country: CN (occurrence: CN)
  Receive Date: 20220921
  Receipt Date: 20231207
  Transmission Date: 20240110
  Serious: Yes (Hospitalization, Other)
  Sender: FDA-Public Use
  Company Number: CN-BRISTOL-MYERS SQUIBB COMPANY-2022-106693

PATIENT
  Age: 60 Year
  Sex: Female
  Weight: 61 kg

DRUGS (6)
  1. IPILIMUMAB [Suspect]
     Active Substance: IPILIMUMAB
     Indication: Pleural mesothelioma
     Dosage: ALSO RECEIVED 12-JUL-2022? MOST RECENT DOSE ON 23-AUG-2022 (61MG)
     Route: 041
     Dates: start: 20220531, end: 20220823
  2. LACTULOSE [Concomitant]
     Active Substance: LACTULOSE
     Indication: Constipation
     Route: 048
     Dates: start: 20220614
  3. HEMOCOAGULASE [Concomitant]
     Indication: Prophylaxis
     Dosage: DOSE 1 UNIT NOS
     Route: 030
     Dates: start: 20220913, end: 20220919
  4. COVID-19 VACCINE [Concomitant]
     Indication: COVID-19 prophylaxis
     Dosage: SECOND DOSE
     Dates: start: 20210614
  5. COVID-19 VACCINE [Concomitant]
     Dosage: THIRD DOSE
     Dates: start: 20211216
  6. COVID-19 VACCINE [Concomitant]
     Dosage: FIRST DOSE
     Dates: start: 20210520

REACTIONS (2)
  - Platelet count decreased [Recovered/Resolved]
  - Immune thrombocytopenia [Unknown]

NARRATIVE: CASE EVENT DATE: 20220913
